FAERS Safety Report 21622112 (Version 4)
Quarter: 2023Q2

REPORT INFORMATION
  Report Type: Report from Study
  Country: AR (occurrence: AR)
  Receive Date: 20221121
  Receipt Date: 20230524
  Transmission Date: 20230721
  Serious: Yes (Other)
  Sender: FDA-Public Use
  Company Number: AR-002147023-NVSC2022AR219004

PATIENT
  Age: 64 Year
  Sex: Female

DRUGS (6)
  1. KISQALI [Suspect]
     Active Substance: RIBOCICLIB
     Indication: Breast cancer metastatic
     Dosage: 600 MG, QD
     Route: 048
  2. KISQALI [Suspect]
     Active Substance: RIBOCICLIB
     Dosage: 200 MG, TID
     Route: 048
     Dates: start: 20220822
  3. KISQALI [Suspect]
     Active Substance: RIBOCICLIB
     Dosage: 600 MG, QD
     Route: 048
     Dates: start: 20220822
  4. KISQALI [Suspect]
     Active Substance: RIBOCICLIB
     Dosage: 400 MG, QD
     Route: 048
     Dates: start: 20220822
  5. LEVOTHYROXINE [Concomitant]
     Active Substance: LEVOTHYROXINE
     Indication: Thyroid disorder
     Dosage: UNK
     Route: 065
  6. METFORMIN [Concomitant]
     Active Substance: METFORMIN HYDROCHLORIDE
     Indication: Diabetes mellitus
     Dosage: UNK
     Route: 065

REACTIONS (18)
  - Second primary malignancy [Unknown]
  - Gait disturbance [Unknown]
  - Lung disorder [Unknown]
  - Bone cancer [Unknown]
  - Tooth disorder [Unknown]
  - Abdominal discomfort [Unknown]
  - Eating disorder [Unknown]
  - Pain in extremity [Unknown]
  - Varicose vein [Unknown]
  - Joint stiffness [Unknown]
  - Feeling hot [Unknown]
  - Peripheral swelling [Unknown]
  - Osteoarthritis [Unknown]
  - Blood pressure abnormal [Recovering/Resolving]
  - Musculoskeletal stiffness [Unknown]
  - Pain in jaw [Unknown]
  - Illness [Recovering/Resolving]
  - Inappropriate schedule of product administration [Unknown]

NARRATIVE: CASE EVENT DATE: 20230515
